FAERS Safety Report 4971618-2 (Version None)
Quarter: 2006Q2

REPORT INFORMATION
  Report Type: 
  Country: None (occurrence: None)
  Receive Date: 20060406
  Receipt Date: 20060315
  Transmission Date: 20061013
  Serious: Yes (Other)
  Sender: FDA-Public Use
  Company Number: US200603004297

PATIENT
  Age: 14 Year
  Sex: Male

DRUGS (1)
  1. HUMATROPE [Suspect]
     Dosage: 0.63 MG, DAILY (1/D)

REACTIONS (1)
  - OSTEOSARCOMA RECURRENT [None]
